FAERS Safety Report 6031306-0 (Version None)
Quarter: 2008Q4

REPORT INFORMATION
  Report Type: 
  Country: None (occurrence: None)
  Receive Date: 20081222
  Receipt Date: 20081017
  Transmission Date: 20090506
  Serious: No
  Sender: FDA-Public Use
  Company Number: US-WYE-H06481808

PATIENT
  Age: 35 Year
  Sex: Female

DRUGS (3)
  1. PRISTIQ [Suspect]
     Indication: DEPRESSION
     Dosage: 50 MG 1X PER 1 DAY, ORAL, 50 MG 1X PER 3 DAY, ORAL, 50 MG 1X PER 2 DAY, ORAL
     Route: 048
     Dates: start: 20080701, end: 20081001
  2. PRISTIQ [Suspect]
     Indication: DEPRESSION
     Dosage: 50 MG 1X PER 1 DAY, ORAL, 50 MG 1X PER 3 DAY, ORAL, 50 MG 1X PER 2 DAY, ORAL
     Route: 048
     Dates: start: 20081001, end: 20081015
  3. PRISTIQ [Suspect]
     Indication: DEPRESSION
     Dosage: 50 MG 1X PER 1 DAY, ORAL, 50 MG 1X PER 3 DAY, ORAL, 50 MG 1X PER 2 DAY, ORAL
     Route: 048
     Dates: start: 20081001

REACTIONS (5)
  - DIZZINESS [None]
  - DRUG INEFFECTIVE [None]
  - DRUG WITHDRAWAL SYNDROME [None]
  - NAUSEA [None]
  - PRESYNCOPE [None]
